FAERS Safety Report 10977613 (Version 3)
Quarter: 2015Q3

REPORT INFORMATION
  Report Type: Spontaneous
  Country: US (occurrence: US)
  Receive Date: 20150402
  Receipt Date: 20150805
  Transmission Date: 20151125
  Serious: Yes (Life-Threatening, Hospitalization, Other)
  Sender: FDA-Public Use
  Company Number: US-BAYER-2015-072160

PATIENT
  Age: 26 Year
  Sex: Female
  Weight: 54 kg

DRUGS (1)
  1. MIRENA [Suspect]
     Active Substance: LEVONORGESTREL
     Indication: CONTRACEPTION
     Dosage: 20 MCG/24HR, CONT
     Route: 015
     Dates: start: 20090409, end: 20110923

REACTIONS (10)
  - Injury [None]
  - General physical health deterioration [None]
  - Genital haemorrhage [Recovered/Resolved]
  - Infection [None]
  - Abdominal pain [None]
  - Uterine perforation [None]
  - Chills [None]
  - Pyrexia [None]
  - Device issue [None]
  - Pelvic pain [None]

NARRATIVE: CASE EVENT DATE: 200905
